FAERS Safety Report 8685785 (Version 6)
Quarter: 2013Q1

REPORT INFORMATION
  Report Type: Report from Study
  Country: AR (occurrence: AR)
  Receive Date: 20120726
  Receipt Date: 20130103
  Transmission Date: 20140127
  Serious: Yes (Death, Life-Threatening, Hospitalization, Other)
  Sender: FDA-Public Use
  Company Number: PHHO2011AR021780

PATIENT
  Age: 54 Year
  Sex: Female
  Weight: 58 kg

DRUGS (4)
  1. MYFORTIC [Suspect]
     Indication: RENAL TRANSPLANT
     Dosage: 720 MG, BID
     Route: 048
     Dates: start: 20111216, end: 20120124
  2. PROGRAF [Suspect]
     Indication: RENAL TRANSPLANT
     Dosage: 4 MG, BID
     Route: 048
     Dates: start: 20111216, end: 20120125
  3. PROGRAF [Suspect]
     Dosage: 10 MG, UNK
     Route: 048
  4. NEORAL [Suspect]
     Indication: RENAL TRANSPLANT
     Dosage: UNK
     Dates: start: 20120126

REACTIONS (11)
  - Pneumonia aspiration [Unknown]
  - Septic shock [Fatal]
  - Urinary tract infection [Fatal]
  - Cardiac arrest [Fatal]
  - Bacteraemia [Not Recovered/Not Resolved]
  - Ischaemic stroke [Not Recovered/Not Resolved]
  - Renal impairment [Recovered/Resolved with Sequelae]
  - Dehydration [Recovering/Resolving]
  - Tubulointerstitial nephritis [Unknown]
  - Leukocytosis [Recovering/Resolving]
  - Pyrexia [Not Recovered/Not Resolved]
